FAERS Safety Report 16853756 (Version 2)
Quarter: 2022Q1

REPORT INFORMATION
  Report Type: Spontaneous
  Country: US (occurrence: US)
  Receive Date: 20190926
  Receipt Date: 20220318
  Transmission Date: 20220423
  Serious: No
  Sender: FDA-Public Use
  Company Number: US-GSKCCFUS-CASE-00409729

PATIENT
  Sex: Female

DRUGS (1)
  1. ARNUITY ELLIPTA [Suspect]
     Active Substance: FLUTICASONE FUROATE
     Indication: Pulmonary fibrosis
     Dosage: 1 PUFF(S), SINGLE 100 MCG
     Route: 065

REACTIONS (6)
  - Feeling abnormal [Recovered/Resolved]
  - Insomnia [Recovered/Resolved]
  - Wrong technique in device usage process [Unknown]
  - Blood pressure increased [Unknown]
  - Grief reaction [Unknown]
  - Cough [Unknown]

NARRATIVE: CASE EVENT DATE: 20190101
